FAERS Safety Report 7950830-4 (Version None)
Quarter: 2011Q4

REPORT INFORMATION
  Report Type: 
  Country: None (occurrence: None)
  Receive Date: 20111201
  Receipt Date: 20111128
  Transmission Date: 20120403
  Serious: No
  Sender: FDA-Public Use
  Company Number: US-PFIZER INC-2011290365

PATIENT
  Sex: Female
  Weight: 38.549 kg

DRUGS (2)
  1. IBUPROFEN (ADVIL) [Suspect]
     Indication: MYALGIA
  2. IBUPROFEN (ADVIL) [Suspect]
     Indication: PAIN
     Dosage: UNK
     Dates: start: 20111126, end: 20111128

REACTIONS (1)
  - RASH [None]
